FAERS Safety Report 8400632-X (Version None)
Quarter: 2012Q2

REPORT INFORMATION
  Report Type: 
  Country: None (occurrence: None)
  Receive Date: 20120531
  Receipt Date: 20110623
  Transmission Date: 20120825
  Serious: No
  Sender: FDA-Public Use
  Company Number: US-NOVEN-11US002696

PATIENT
  Age: 6 Year
  Sex: Male

DRUGS (2)
  1. DAYTRANA [Suspect]
     Indication: ATTENTION DEFICIT/HYPERACTIVITY DISORDER
     Dosage: 1/2 20 MG PATCH, UNK
     Route: 062
     Dates: start: 20110615, end: 20110622
  2. DAYTRANA [Suspect]
     Dosage: 20 MG, UNK
     Route: 062
     Dates: start: 20110623

REACTIONS (4)
  - PRODUCT QUALITY ISSUE [None]
  - NO ADVERSE EVENT [None]
  - DRUG ADMINISTERED AT INAPPROPRIATE SITE [None]
  - WRONG TECHNIQUE IN DRUG USAGE PROCESS [None]
